FAERS Safety Report 5505886-5 (Version None)
Quarter: 2007Q4

REPORT INFORMATION
  Report Type: 
  Country: None (occurrence: None)
  Receive Date: 20071102
  Receipt Date: 20071023
  Transmission Date: 20080405
  Serious: Yes (Other)
  Sender: FDA-Public Use
  Company Number: FR-PFIZER INC-2007090259

PATIENT
  Age: 40 Year
  Sex: Male

DRUGS (2)
  1. CHAMPIX [Suspect]
     Dates: start: 20070101, end: 20070101
  2. ANXIOLYTICS [Concomitant]

REACTIONS (1)
  - PYELONEPHRITIS [None]
